FAERS Safety Report 8369146-X (Version None)
Quarter: 2012Q1

REPORT INFORMATION
  Report Type: 
  Country: None (occurrence: None)
  Receive Date: 20120323
  Receipt Date: 20111020
  Transmission Date: 20120608
  Serious: Yes (Other)
  Sender: FDA-Public Use
  Company Number: 163-21880-11090131

PATIENT
  Age: 87 Year
  Sex: Female

DRUGS (22)
  1. NYSTOP (NYSTATIN) [Concomitant]
  2. GABAPENTIN [Concomitant]
  3. VICODIN [Concomitant]
  4. DILTIAZEM HCL [Concomitant]
  5. LOPRESSOR [Concomitant]
  6. CEPHALEXIN [Concomitant]
  7. FUROSEMIDE [Concomitant]
  8. POTASSIUM CHLORIDE [Concomitant]
  9. VITAMIN B12 [Concomitant]
  10. WARFARIN SODIUM [Concomitant]
  11. PREDNISONE TAB [Concomitant]
  12. ACETAMINOPHEN [Concomitant]
  13. REVLIMID [Suspect]
     Indication: MULTIPLE MYELOMA
     Dosage: 25 MG, 1 IN 1 D, PO 10 MG, 1 IN 1 D, PO
     Route: 048
     Dates: start: 20110803
  14. REVLIMID [Suspect]
     Indication: MULTIPLE MYELOMA
     Dosage: 25 MG, 1 IN 1 D, PO 10 MG, 1 IN 1 D, PO
     Route: 048
     Dates: start: 20101201, end: 20110701
  15. KLOR-CON [Concomitant]
  16. METOPROLOL TARTRATE [Concomitant]
  17. VIGAMOX [Concomitant]
  18. VICODIN [Concomitant]
  19. ACYCLOVIR [Concomitant]
  20. DEXAMETHASONE [Concomitant]
  21. VITAMIN D [Concomitant]
  22. LEVAQUIN [Concomitant]

REACTIONS (2)
  - PANCYTOPENIA [None]
  - DECUBITUS ULCER [None]
